FAERS Safety Report 25500423 (Version 1)
Quarter: 2025Q2

REPORT INFORMATION
  Report Type: Spontaneous
  Country: US (occurrence: None)
  Receive Date: 20250630
  Receipt Date: 20250630
  Transmission Date: 20250717
  Serious: Yes (Other)
  Sender: FDA-CTU
  Company Number: None

PATIENT
  Age: 31 Year
  Sex: Female
  Weight: 63 kg

DRUGS (4)
  1. DYSPORT [Suspect]
     Active Substance: ABOBOTULINUMTOXINA
     Indication: Skin cosmetic procedure
     Route: 058
     Dates: start: 20240905, end: 20241209
  2. COSMETICS [Suspect]
     Active Substance: COSMETICS
  3. SERTRALINE [Concomitant]
     Active Substance: SERTRALINE HYDROCHLORIDE
  4. TYLENOL [Concomitant]
     Active Substance: ACETAMINOPHEN

REACTIONS (10)
  - Nausea [None]
  - Vomiting [None]
  - Diarrhoea [None]
  - Fatigue [None]
  - Headache [None]
  - Pain in extremity [None]
  - Bedridden [None]
  - Hypophagia [None]
  - Contusion [None]
  - Emotional distress [None]

NARRATIVE: CASE EVENT DATE: 20240905
